FAERS Safety Report 10583304 (Version 2)
Quarter: 2015Q1

REPORT INFORMATION
  Report Type: Spontaneous
  Country: DE (occurrence: DE)
  Receive Date: 20141114
  Receipt Date: 20150331
  Transmission Date: 20150720
  Serious: Yes (Other)
  Sender: FDA-Public Use
  Company Number: DE-SUN PHARMACEUTICAL INDUSTRIES LTD-2014SUN02545

PATIENT
  Age: 38 Year
  Sex: Female

DRUGS (3)
  1. PACLITAXEL SUN 6MG/ML KONZENTRAT ZUR HERSTELLUNG EINER INFUSIONSL?SUNG [Suspect]
     Active Substance: PACLITAXEL
     Indication: CHOLANGIOCARCINOMA
     Route: 065
  2. CISPLATIN. [Concomitant]
     Active Substance: CISPLATIN
     Dosage: 50 MG/M2, ON DAY 1 OF A 21-DAY CYCLE
  3. GEMCITABINE [Suspect]
     Active Substance: GEMCITABINE\GEMCITABINE HYDROCHLORIDE
     Indication: CHOLANGIOCARCINOMA
     Dosage: 1000 MG/M2, ON DAYS 1 AND 8 OF A 21-DAY CYCLE
     Route: 065

REACTIONS (16)
  - Metastases to pelvis [None]
  - Premature delivery [None]
  - Leukopenia [Unknown]
  - Malignant neoplasm progression [None]
  - Caesarean section [None]
  - Metastases to soft tissue [None]
  - Polyneuropathy [Unknown]
  - Metastases to the mediastinum [None]
  - Drug intolerance [None]
  - Premature labour [Unknown]
  - Metastases to bone [None]
  - Exposure during pregnancy [Unknown]
  - Metastases to liver [None]
  - Metastases to spine [None]
  - Metastases to lung [None]
  - Haematotoxicity [None]
